FAERS Safety Report 24443342 (Version 1)
Quarter: 2024Q4

REPORT INFORMATION
  Report Type: Spontaneous
  Country: JP (occurrence: JP)
  Receive Date: 20241016
  Receipt Date: 20241016
  Transmission Date: 20250114
  Serious: Yes (Life-Threatening, Hospitalization)
  Sender: ACCORD
  Company Number: JP-Accord-450888

PATIENT
  Age: 85 Year
  Sex: Male

DRUGS (3)
  1. CARBOPLATIN [Suspect]
     Active Substance: CARBOPLATIN
     Indication: Nasal sinus cancer
     Dates: start: 2022
  2. PACLITAXEL [Suspect]
     Active Substance: PACLITAXEL
     Indication: Nasal sinus cancer
     Dosage: PCE INDUCTION DRUG THERAPY
     Dates: start: 2022
  3. CETUXIMAB [Suspect]
     Active Substance: CETUXIMAB
     Indication: Nasal sinus cancer
     Dosage: INDUCTION DRUG THERAPY
     Dates: start: 2022

REACTIONS (6)
  - Intestinal ischaemia [Recovering/Resolving]
  - Circulatory collapse [Recovering/Resolving]
  - Pneumonia aspiration [Unknown]
  - Gastrointestinal necrosis [Recovering/Resolving]
  - Intestinal haemorrhage [Recovering/Resolving]
  - Cognitive disorder [Unknown]

NARRATIVE: CASE EVENT DATE: 20220101
